FAERS Safety Report 24735785 (Version 1)
Quarter: 2024Q4

REPORT INFORMATION
  Report Type: Spontaneous
  Country: HU (occurrence: HU)
  Receive Date: 20241216
  Receipt Date: 20241216
  Transmission Date: 20250114
  Serious: Yes (Other)
  Sender: CSL BEHRING
  Company Number: HU-BEH-2024187796

PATIENT
  Age: 39 Year
  Sex: Female
  Weight: 76 kg

DRUGS (2)
  1. HIZENTRA [Suspect]
     Active Substance: HUMAN IMMUNOGLOBULIN G
     Indication: Immunodeficiency common variable
     Dosage: 6 G, QW
     Route: 058
     Dates: start: 2022
  2. SYMBICORT [Concomitant]
     Active Substance: BUDESONIDE\FORMOTEROL FUMARATE DIHYDRATE
     Indication: Asthma
     Dosage: 2X1EXP. (4.5/160 MCG)
     Route: 055
     Dates: start: 2018

REACTIONS (13)
  - Embolism [Recovered/Resolved]
  - Haemolysis [Recovered/Resolved]
  - Headache [Recovered/Resolved]
  - Pyrexia [Recovered/Resolved]
  - Nausea [Recovered/Resolved]
  - Vomiting [Recovered/Resolved]
  - Blood pressure decreased [Recovered/Resolved]
  - Erythema [Recovered/Resolved]
  - Swelling [Recovered/Resolved]
  - Pain [Recovered/Resolved]
  - Rash [Recovered/Resolved]
  - Chills [Recovered/Resolved]
  - Injection site erythema [Recovered/Resolved]

NARRATIVE: CASE EVENT DATE: 20240801
